FAERS Safety Report 5536350-5 (Version None)
Quarter: 2007Q4

REPORT INFORMATION
  Report Type: 
  Country: None (occurrence: None)
  Receive Date: 20071206
  Receipt Date: 20071128
  Transmission Date: 20080405
  Serious: Yes (Other)
  Sender: FDA-Public Use
  Company Number: JP-PFIZER INC-2007099610

PATIENT
  Age: 53 Year
  Sex: Female

DRUGS (3)
  1. NORVASC [Suspect]
     Indication: HYPERTENSION
     Dosage: DAILY DOSE:5MG
     Route: 048
     Dates: start: 20070401, end: 20070701
  2. AMLODIN [Concomitant]
     Route: 048
  3. BLOPRESS [Concomitant]
     Indication: HYPERTENSION
     Route: 048

REACTIONS (3)
  - FALL [None]
  - OEDEMA PERIPHERAL [None]
  - RENAL IMPAIRMENT [None]
